FAERS Safety Report 4286377-9 (Version None)
Quarter: 2004Q1

REPORT INFORMATION
  Report Type: 
  Country: None (occurrence: None)
  Receive Date: 20040121
  Receipt Date: 20030506
  Transmission Date: 20041129
  Serious: Yes (Hospitalization)
  Sender: FDA-Public Use
  Company Number: A03200300985

PATIENT
  Age: 85 Year
  Sex: Male
  Weight: 87.0906 kg

DRUGS (11)
  1. PLAVIX [Suspect]
     Indication: CEREBROVASCULAR ACCIDENT
     Dosage: 75 MG QD-ORAL
     Route: 048
     Dates: start: 19970801
  2. PLAVIX [Suspect]
     Indication: CEREBROVASCULAR ACCIDENT
     Dosage: 37 MG QD-ORAL
     Route: 048
     Dates: start: 20030401
  3. PLAVIX [Suspect]
     Indication: CEREBROVASCULAR ACCIDENT
     Dosage: 75 MG QD-ORAL
     Route: 048
     Dates: start: 20030101
  4. ASPIRIN [Suspect]
     Dosage: 325 MG QD-ORAL
     Route: 048
     Dates: end: 20030101
  5. CLARITHROMYCIN [Concomitant]
  6. ETHAMBUTOL HCL [Concomitant]
  7. METOPROLOL SUCCINATE [Concomitant]
  8. ATORVASTATIN [Concomitant]
  9. ALBUTEROL [Concomitant]
  10. FOLIC ACID [Concomitant]
  11. FLUTICASONE PROPIONATE [Concomitant]

REACTIONS (1)
  - HAEMOPTYSIS [None]
